FAERS Safety Report 9259303 (Version 4)
Quarter: 2014Q2

REPORT INFORMATION
  Report Type: Report from Study
  Country: CA (occurrence: CA)
  Receive Date: 20130427
  Receipt Date: 20140521
  Transmission Date: 20141212
  Serious: Yes (Hospitalization)
  Sender: FDA-Public Use
  Company Number: CA-UCBSA-084138

PATIENT
  Age: 52 Year
  Sex: Female
  Weight: 70 kg

DRUGS (12)
  1. CIMZIA [Suspect]
     Indication: CROHN^S DISEASE
     Dosage: WEEKS 0-2-4
     Route: 058
     Dates: start: 20120628, end: 20120727
  2. CIMZIA [Suspect]
     Indication: RHEUMATOID ARTHRITIS
     Dosage: WEEKS 0-2-4
     Route: 058
     Dates: start: 20120628, end: 20120727
  3. CIMZIA [Suspect]
     Indication: CROHN^S DISEASE
     Route: 058
     Dates: start: 20120823, end: 20121213
  4. CIMZIA [Suspect]
     Indication: RHEUMATOID ARTHRITIS
     Route: 058
     Dates: start: 20120823, end: 20121213
  5. CIMZIA [Suspect]
     Indication: CROHN^S DISEASE
     Route: 058
     Dates: start: 20130103
  6. CIMZIA [Suspect]
     Indication: RHEUMATOID ARTHRITIS
     Route: 058
     Dates: start: 20130103
  7. MORPHINE [Suspect]
  8. BENADRYL [Suspect]
  9. EMPRACET [Concomitant]
     Indication: RENAL PAIN
     Dosage: Q4HR
     Route: 048
     Dates: start: 20130315
  10. COZAARD [Concomitant]
     Indication: HYPERTENSION
     Route: 048
     Dates: start: 2000
  11. CYMBALTA [Concomitant]
     Indication: RHEUMATOID ARTHRITIS
     Route: 048
     Dates: start: 2012
  12. PREVACID [Concomitant]
     Indication: PROPHYLAXIS AGAINST GASTROINTESTINAL ULCER
     Route: 048

REACTIONS (4)
  - Nephrolithiasis [Recovered/Resolved]
  - Infection [Unknown]
  - Pyelonephritis acute [Recovered/Resolved]
  - Pancreatitis [Recovering/Resolving]
